FAERS Safety Report 8195847 (Version 6)
Quarter: 2013Q2

REPORT INFORMATION
  Report Type: Report from Study
  Country: AU (occurrence: AU)
  Receive Date: 20111024
  Receipt Date: 20130530
  Transmission Date: 20140414
  Serious: Yes (Other)
  Sender: FDA-Public Use
  Company Number: PHHY2011AU91446

PATIENT
  Sex: Male

DRUGS (2)
  1. SANDOSTATIN LAR [Suspect]
     Indication: CARCINOID SYNDROME
     Dosage: 30 MG
     Route: 030
  2. SANDOSTATIN LAR [Suspect]
     Dosage: UNK UKN, UNK

REACTIONS (11)
  - Device related infection [Unknown]
  - Pyrexia [Recovered/Resolved]
  - Chills [Unknown]
  - Musculoskeletal pain [Recovering/Resolving]
  - Mass [Recovering/Resolving]
  - Tenderness [Recovering/Resolving]
  - Device failure [Recovering/Resolving]
  - Diarrhoea [Not Recovered/Not Resolved]
  - Drug ineffective [Unknown]
  - Back pain [Not Recovered/Not Resolved]
  - Abdominal discomfort [Not Recovered/Not Resolved]
